FAERS Safety Report 5493450-6 (Version None)
Quarter: 2007Q4

REPORT INFORMATION
  Report Type: 
  Country: None (occurrence: None)
  Receive Date: 20071023
  Receipt Date: 20071016
  Transmission Date: 20080405
  Serious: Yes (Death)
  Sender: FDA-Public Use
  Company Number: US-SANOFI-SYNTHELABO-A03200706017

PATIENT
  Age: 85 Year
  Sex: Female

DRUGS (10)
  1. CHONDROITIN [Concomitant]
     Dosage: UNK
     Route: 048
     Dates: end: 20071008
  2. GLUCOSAMINE [Concomitant]
     Dosage: UNK
     Route: 048
     Dates: end: 20071008
  3. PLAVIX [Suspect]
     Indication: CEREBROVASCULAR ACCIDENT PROPHYLAXIS
     Route: 048
     Dates: end: 20071008
  4. ATENOLOL [Concomitant]
     Dosage: UNK
     Route: 048
     Dates: end: 20071008
  5. LISINOPRIL [Concomitant]
     Dosage: UNK
     Route: 048
     Dates: end: 20071008
  6. HYDROCHLOROTHIAZIDE [Concomitant]
     Dosage: UNK
     Route: 048
     Dates: end: 20071008
  7. LOVASTATIN [Concomitant]
     Dosage: UNK
     Route: 048
     Dates: end: 20071008
  8. CENTRUM [Concomitant]
     Dosage: UNK
     Route: 048
     Dates: end: 20071008
  9. VITAMIN B COMPLEX CAP [Concomitant]
     Dosage: UNK
     Route: 048
     Dates: end: 20071008
  10. MSM [Concomitant]
     Dosage: UNK
     Route: 048
     Dates: end: 20071008

REACTIONS (2)
  - CEREBROVASCULAR ACCIDENT [None]
  - MYOCARDIAL INFARCTION [None]
